FAERS Safety Report 5703136-8 (Version None)
Quarter: 2008Q2

REPORT INFORMATION
  Report Type: 
  Country: None (occurrence: None)
  Receive Date: 20080411
  Receipt Date: 20080331
  Transmission Date: 20081010
  Serious: Yes (Other)
  Sender: FDA-Public Use
  Company Number: JP-PFIZER INC-2008020826

PATIENT
  Sex: Male
  Weight: 40 kg

DRUGS (9)
  1. UNASYN [Suspect]
     Indication: PNEUMONIA
     Dosage: DAILY DOSE:6GRAM
     Route: 042
     Dates: start: 20080121, end: 20080131
  2. LOXONIN [Suspect]
  3. CRAVIT [Suspect]
     Indication: PNEUMONIA
     Dosage: DAILY DOSE:300MG
     Route: 048
     Dates: start: 20080120, end: 20080120
  4. CLARITHROMYCIN [Suspect]
     Indication: PNEUMONIA
     Dosage: DAILY DOSE:400MG
     Route: 048
     Dates: start: 20080123, end: 20080209
  5. PANSPORIN [Concomitant]
     Route: 042
  6. TAKEPRON [Concomitant]
     Route: 048
  7. CEROCRAL [Concomitant]
     Route: 048
     Dates: start: 20040629
  8. SELBEX [Concomitant]
     Route: 048
     Dates: start: 20050317
  9. ASPIRIN [Concomitant]
     Route: 048
     Dates: start: 20060810, end: 20080209

REACTIONS (1)
  - INTERSTITIAL LUNG DISEASE [None]
